FAERS Safety Report 7323811-1 (Version None)
Quarter: 2011Q1

REPORT INFORMATION
  Report Type: 
  Country: None (occurrence: None)
  Receive Date: 20110301
  Receipt Date: 20110224
  Transmission Date: 20110831
  Serious: Yes (Hospitalization)
  Sender: FDA-Public Use
  Company Number: A0886378A

PATIENT
  Age: 49 Year
  Sex: Male

DRUGS (2)
  1. AVANDAMET [Suspect]
     Route: 048
     Dates: start: 20050101, end: 20070101
  2. AVANDIA [Suspect]
     Dosage: 4MG TWICE PER DAY
     Route: 048
     Dates: start: 20000101, end: 20100101

REACTIONS (5)
  - CARDIAC FAILURE CONGESTIVE [None]
  - VISION BLURRED [None]
  - FLUID RETENTION [None]
  - CARDIOMYOPATHY [None]
  - RENAL FAILURE [None]
